FAERS Safety Report 25865934 (Version 2)
Quarter: 2025Q4

REPORT INFORMATION
  Report Type: Spontaneous
  Country: CA (occurrence: CA)
  Receive Date: 20250930
  Receipt Date: 20251024
  Transmission Date: 20260118
  Serious: Yes (Other)
  Sender: BAUSCH AND LOMB
  Company Number: CA-BAUSCH-BH-2025-017943

PATIENT
  Sex: Female

DRUGS (9)
  1. BUPROPION [Suspect]
     Active Substance: BUPROPION
     Indication: Substance use disorder
     Route: 065
  2. BUPROPION [Suspect]
     Active Substance: BUPROPION
     Route: 065
     Dates: start: 2022
  3. VENLAFAXINE [Suspect]
     Active Substance: VENLAFAXINE HYDROCHLORIDE
     Indication: Substance use disorder
     Route: 065
     Dates: start: 2022
  4. ESCITALOPRAM [Suspect]
     Active Substance: ESCITALOPRAM OXALATE
     Indication: Antidepressant therapy
     Route: 065
  5. ARIPIPRAZOLE [Suspect]
     Active Substance: ARIPIPRAZOLE
     Indication: Substance use disorder
     Route: 065
  6. ARIPIPRAZOLE [Suspect]
     Active Substance: ARIPIPRAZOLE
     Route: 065
     Dates: start: 2022
  7. ARIPIPRAZOLE [Suspect]
     Active Substance: ARIPIPRAZOLE
     Route: 065
  8. NALTREXONE [Suspect]
     Active Substance: NALTREXONE
     Indication: Substance use disorder
     Route: 065
     Dates: start: 2019
  9. NALTREXONE [Suspect]
     Active Substance: NALTREXONE
     Route: 065
     Dates: start: 2022

REACTIONS (1)
  - Therapy partial responder [Unknown]
